FAERS Safety Report 20657982 (Version 2)
Quarter: 2022Q2

REPORT INFORMATION
  Report Type: Spontaneous
  Country: BR (occurrence: BR)
  Receive Date: 20220331
  Receipt Date: 20220408
  Transmission Date: 20220721
  Serious: Yes (Other)
  Sender: FDA-Public Use
  Company Number: BR-CELLTRION INC.-2022BR003715

PATIENT

DRUGS (3)
  1. INFLIXIMAB [Suspect]
     Active Substance: INFLIXIMAB
     Indication: Psoriasis
     Dosage: 5 AMPOULS 100MG EVERY 4 WEEKS
     Route: 042
     Dates: start: 20200622
  2. INFLIXIMAB [Suspect]
     Active Substance: INFLIXIMAB
     Dosage: 5 AMPOULS 100MG EVERY 4 WEEKS
     Route: 042
     Dates: start: 20211209
  3. INFLIXIMAB [Suspect]
     Active Substance: INFLIXIMAB
     Dosage: 500 MG, EVERY 4 WEEKS
     Route: 042
     Dates: start: 20220328

REACTIONS (7)
  - Psoriasis [Unknown]
  - Suspected COVID-19 [Recovered/Resolved]
  - Intentional dose omission [Recovered/Resolved]
  - Therapy interrupted [Unknown]
  - Product availability issue [Unknown]
  - Overdose [Unknown]
  - Off label use [Unknown]
